FAERS Safety Report 19288227 (Version 6)
Quarter: 2023Q2

REPORT INFORMATION
  Report Type: Report from Study
  Country: DE (occurrence: DE)
  Receive Date: 20210521
  Receipt Date: 20230607
  Transmission Date: 20230721
  Serious: Yes (Hospitalization, Other)
  Sender: FDA-Public Use
  Company Number: DE-SHIRE-DE201902146

PATIENT
  Age: 58 Year
  Sex: Female

DRUGS (18)
  1. PARATHYROID HORMONE [Suspect]
     Active Substance: PARATHYROID HORMONE
     Indication: Hypoparathyroidism
     Dosage: 50 MICROGRAM, QD
     Route: 058
     Dates: start: 20181206
  2. PARATHYROID HORMONE [Suspect]
     Active Substance: PARATHYROID HORMONE
     Indication: Hypoparathyroidism
     Dosage: 50 MICROGRAM, QD
     Route: 058
     Dates: start: 20181206
  3. PARATHYROID HORMONE [Suspect]
     Active Substance: PARATHYROID HORMONE
     Indication: Hypoparathyroidism
     Dosage: 50 MICROGRAM, QD
     Route: 058
     Dates: start: 20181206
  4. PARATHYROID HORMONE [Suspect]
     Active Substance: PARATHYROID HORMONE
     Dosage: 75 MICROGRAM, QD
     Route: 058
     Dates: end: 20210512
  5. PARATHYROID HORMONE [Suspect]
     Active Substance: PARATHYROID HORMONE
     Dosage: 75 MICROGRAM, QD
     Route: 058
     Dates: end: 20210512
  6. PARATHYROID HORMONE [Suspect]
     Active Substance: PARATHYROID HORMONE
     Dosage: 75 MICROGRAM, QD
     Route: 058
     Dates: end: 20210512
  7. PARATHYROID HORMONE [Suspect]
     Active Substance: PARATHYROID HORMONE
     Dosage: 75 MICROGRAM, BID
     Route: 058
  8. PARATHYROID HORMONE [Suspect]
     Active Substance: PARATHYROID HORMONE
     Dosage: 75 MICROGRAM, BID
     Route: 058
  9. PARATHYROID HORMONE [Suspect]
     Active Substance: PARATHYROID HORMONE
     Dosage: 75 MICROGRAM, BID
     Route: 058
  10. PARATHYROID HORMONE [Suspect]
     Active Substance: PARATHYROID HORMONE
     Dosage: 150 MICROGRAM, QD
     Route: 058
  11. PARATHYROID HORMONE [Suspect]
     Active Substance: PARATHYROID HORMONE
     Dosage: 150 MICROGRAM, QD
     Route: 058
  12. PARATHYROID HORMONE [Suspect]
     Active Substance: PARATHYROID HORMONE
     Dosage: 150 MICROGRAM, QD
     Route: 058
  13. ROCALTROL [Concomitant]
     Active Substance: CALCITRIOL
     Indication: Hypoparathyroidism
     Dosage: UNK
     Route: 065
  14. CHOLECALCIFEROL [Concomitant]
     Active Substance: CHOLECALCIFEROL
     Indication: Product used for unknown indication
     Dosage: UNK
     Route: 065
  15. CALCITRIOL [Concomitant]
     Active Substance: CALCITRIOL
     Indication: Hypoparathyroidism
     Dosage: 0.5 MICROGRAM, TID
     Route: 048
  16. AMILORIDE\BENDROFLUMETHIAZIDE [Concomitant]
     Active Substance: AMILORIDE\BENDROFLUMETHIAZIDE
     Indication: Oedema peripheral
     Dosage: 2.5 MICROGRAM, QD
     Route: 048
  17. AMILORIDE\BENDROFLUMETHIAZIDE [Concomitant]
     Active Substance: AMILORIDE\BENDROFLUMETHIAZIDE
     Indication: Oedema
  18. RAMIPRIL [Concomitant]
     Active Substance: RAMIPRIL
     Indication: Hypertension
     Dosage: UNK, BID
     Route: 048

REACTIONS (17)
  - Hypertrophic cardiomyopathy [Not Recovered/Not Resolved]
  - Oedema peripheral [Not Recovered/Not Resolved]
  - Limb injury [Recovered/Resolved]
  - Inflammation of wound [Recovered/Resolved]
  - Hypertonia [Not Recovered/Not Resolved]
  - Back injury [Unknown]
  - General physical health deterioration [Recovered/Resolved]
  - Fall [Recovered/Resolved]
  - Elephantiasis [Unknown]
  - Neoplasm malignant [Not Recovered/Not Resolved]
  - Arthralgia [Not Recovered/Not Resolved]
  - Renal pain [Recovered/Resolved]
  - Blood calcium decreased [Recovered/Resolved]
  - Blood calcium increased [Recovered/Resolved]
  - Hypoaesthesia [Not Recovered/Not Resolved]
  - Haematoma [Recovered/Resolved]
  - Back pain [Not Recovered/Not Resolved]

NARRATIVE: CASE EVENT DATE: 20181206
